FAERS Safety Report 9424477 (Version 1)
Quarter: 2013Q3

REPORT INFORMATION
  Report Type: Spontaneous
  Country: US (occurrence: None)
  Receive Date: 20130726
  Receipt Date: 20130726
  Transmission Date: 20140515
  Serious: Yes (Hospitalization, Disabling)
  Sender: FDA-Public Use
  Company Number: None

PATIENT
  Age: 47 Year
  Sex: Female
  Weight: 61.69 kg

DRUGS (1)
  1. COPAXONE [Suspect]
     Indication: MULTIPLE SCLEROSIS
     Route: 058
     Dates: start: 2003

REACTIONS (6)
  - Fall [None]
  - Lower limb fracture [None]
  - Leg amputation [None]
  - Wound infection staphylococcal [None]
  - Procedural site reaction [None]
  - Impaired healing [None]
